FAERS Safety Report 8417033-0 (Version None)
Quarter: 2012Q2

REPORT INFORMATION
  Report Type: 
  Country: None (occurrence: None)
  Receive Date: 20120606
  Receipt Date: 20120529
  Transmission Date: 20120825
  Serious: Yes (Hospitalization, Other)
  Sender: FDA-Public Use
  Company Number: CH-JNJFOC-20120516214

PATIENT
  Sex: Male
  Weight: 65 kg

DRUGS (6)
  1. METFORMIN HCL [Concomitant]
     Indication: DIABETES MELLITUS
  2. XARELTO [Suspect]
     Indication: PROPHYLAXIS
     Route: 048
     Dates: start: 20120501
  3. ACETAMINOPHEN [Concomitant]
  4. PANTOPRAZOLE [Concomitant]
  5. XARELTO [Suspect]
     Indication: POSTOPERATIVE CARE
     Route: 048
     Dates: start: 20120501
  6. DIPYRONE TAB [Concomitant]

REACTIONS (1)
  - VENOUS THROMBOSIS LIMB [None]
